FAERS Safety Report 6676826-0 (Version None)
Quarter: 2010Q2

REPORT INFORMATION
  Report Type: 
  Country: None (occurrence: None)
  Receive Date: 20100409
  Receipt Date: 20100409
  Transmission Date: 20101027
  Serious: Yes (Life-Threatening, Hospitalization)
  Sender: FDA-Public Use
  Company Number: None

PATIENT
  Sex: Female
  Weight: 63.05 kg

DRUGS (3)
  1. OXYCONTIN [Suspect]
     Indication: ARTHRITIS
     Dosage: 50 MG TWICE DAY
  2. OXYCONTIN [Suspect]
     Indication: FIBROMYALGIA
     Dosage: 50 MG TWICE DAY
  3. OXYCONTIN [Suspect]
     Indication: SPINAL COLUMN STENOSIS
     Dosage: 50 MG TWICE DAY

REACTIONS (1)
  - BLOOD PRESSURE INCREASED [None]
